FAERS Safety Report 9201448 (Version 2)
Quarter: 2013Q2

REPORT INFORMATION
  Report Type: Spontaneous
  Country: GB (occurrence: GB)
  Receive Date: 20130401
  Receipt Date: 20130429
  Transmission Date: 20140414
  Serious: Yes (Other)
  Sender: FDA-Public Use
  Company Number: GB-JNJFOC-20130317493

PATIENT
  Age: 84 Year
  Sex: Female
  Weight: 72 kg

DRUGS (2)
  1. XARELTO [Suspect]
     Indication: PRODUCT USED FOR UNKNOWN INDICATION
     Route: 048
     Dates: start: 20121130
  2. INSULIN [Concomitant]
     Route: 065

REACTIONS (1)
  - Hypoglycaemia [Recovered/Resolved]
